FAERS Safety Report 5576277-6 (Version None)
Quarter: 2007Q4

REPORT INFORMATION
  Report Type: 
  Country: None (occurrence: None)
  Receive Date: 20071228
  Receipt Date: 20071217
  Transmission Date: 20080405
  Serious: Yes (Death)
  Sender: FDA-Public Use
  Company Number: FR-ROCHE-538713

PATIENT

DRUGS (2)
  1. CAPECITABINE [Suspect]
     Dosage: ADMINISTERED ON DAYS 1 TO 14 OF A 3 WEEK CYCLE
     Route: 048
  2. OXALIPLATIN [Suspect]
     Dosage: INFUSION OVER 2 H ON DAY 1 OF THE 3 WEEK CYCLE
     Route: 042

REACTIONS (2)
  - LUNG DISORDER [None]
  - NEUTROPENIA [None]
